FAERS Safety Report 5642609-3 (Version None)
Quarter: 2008Q1

REPORT INFORMATION
  Report Type: 
  Country: None (occurrence: None)
  Receive Date: 20080227
  Receipt Date: 20080227
  Transmission Date: 20080703
  Serious: Yes (Death, Hospitalization)
  Sender: FDA-Public Use
  Company Number: None

PATIENT
  Sex: Male
  Weight: 67.586 kg

DRUGS (4)
  1. GEMZAR [Suspect]
     Indication: METASTATIC NEOPLASM
     Dates: start: 20070626
  2. IRINOTECAN HCL [Suspect]
     Indication: METASTATIC NEOPLASM
     Dates: start: 20070626
  3. HYDROCODONE BITARTRATE [Concomitant]
  4. DEXAMETHASONE TAB [Concomitant]

REACTIONS (4)
  - DEHYDRATION [None]
  - MENTAL STATUS CHANGES [None]
  - NEUTROPENIA [None]
  - SEPSIS [None]
